FAERS Safety Report 9900360 (Version 1)
Quarter: 2014Q1

REPORT INFORMATION
  Report Type: Spontaneous
  Country: CH (occurrence: CH)
  Receive Date: 20140216
  Receipt Date: 20140216
  Transmission Date: 20141002
  Serious: Yes (Life-Threatening, Hospitalization)
  Sender: FDA-Public Use
  Company Number: CH-PFIZER INC-2014039402

PATIENT
  Age: 67 Year
  Sex: Female
  Weight: 65 kg

DRUGS (3)
  1. EPIRUBICIN HCL [Suspect]
     Indication: GASTRIC CANCER
     Dosage: 1 DF, CYCLIC (DAY 1 OF CYCLE, EVERY 21 DAYS)
     Route: 041
     Dates: start: 20131202
  2. XELODA [Suspect]
     Indication: GASTRIC CANCER
     Dosage: 650 MG, 2X/DAY
     Route: 048
     Dates: start: 20131202, end: 20131231
  3. OXALIPLATIN [Suspect]
     Indication: GASTRIC CANCER
     Dosage: 1 DF, CYCLIC (DAY 1 OF CYCLE, EVERY 21 DAYS)
     Route: 041
     Dates: start: 20131202

REACTIONS (8)
  - Enterocolitis [Recovered/Resolved]
  - Vomiting [Recovered/Resolved]
  - Diarrhoea [Recovered/Resolved]
  - Febrile neutropenia [Recovered/Resolved]
  - Anaemia [Not Recovered/Not Resolved]
  - Thrombocytopenia [Recovered/Resolved]
  - Blood electrolytes abnormal [Not Recovered/Not Resolved]
  - Presyncope [Recovered/Resolved]
